FAERS Safety Report 19605808 (Version 1)
Quarter: 2021Q3

REPORT INFORMATION
  Report Type: Spontaneous
  Country: GB (occurrence: GB)
  Receive Date: 20210724
  Receipt Date: 20210724
  Transmission Date: 20211014
  Serious: No
  Sender: FDA-Public Use
  Company Number: GB-CANTON LABORATORIES, LLC-2114246

PATIENT
  Age: 67 Year
  Sex: Male

DRUGS (1)
  1. NAPROSYN [Suspect]
     Active Substance: NAPROXEN
     Indication: POST-TRAUMATIC NECK SYNDROME
     Route: 048
     Dates: start: 19990901, end: 20201210

REACTIONS (5)
  - Musculoskeletal stiffness [Recovering/Resolving]
  - Neck pain [Not Recovered/Not Resolved]
  - Arthralgia [Not Recovered/Not Resolved]
  - Muscle swelling [Unknown]
  - Joint stiffness [Recovering/Resolving]
